FAERS Safety Report 6659513-4 (Version None)
Quarter: 2010Q1

REPORT INFORMATION
  Report Type: 
  Country: None (occurrence: None)
  Receive Date: 20100326
  Receipt Date: 20100318
  Transmission Date: 20100710
  Serious: Yes (Hospitalization)
  Sender: FDA-Public Use
  Company Number: 2010SP014984

PATIENT
  Sex: Female

DRUGS (5)
  1. REMERON [Suspect]
     Indication: DEPRESSION
     Dosage: 45 MG;QD;PO
     Route: 048
     Dates: start: 20050108
  2. EFFEXOR [Concomitant]
  3. DEPAKINE CHRONO /00228502/ [Concomitant]
  4. ZOLPIDEM [Concomitant]
  5. ATACAND D [Concomitant]

REACTIONS (4)
  - ANOSMIA [None]
  - BRAIN CONTUSION [None]
  - FALL [None]
  - SEDATION [None]
